FAERS Safety Report 7607639-0 (Version None)
Quarter: 2011Q3

REPORT INFORMATION
  Report Type: 
  Country: None (occurrence: None)
  Receive Date: 20110713
  Receipt Date: 20110510
  Transmission Date: 20111222
  Serious: Yes (Other)
  Sender: FDA-Public Use
  Company Number: PHHY2011US40358

PATIENT
  Sex: Male

DRUGS (4)
  1. KEPPRA [Concomitant]
  2. QVAR 40 [Concomitant]
  3. AFINITOR [Suspect]
     Indication: TUBEROUS SCLEROSIS
     Dosage: 5 MG, QD
     Route: 048
     Dates: start: 20110208
  4. DEPAKOTE [Concomitant]

REACTIONS (2)
  - EPILEPSY [None]
  - IRRITABILITY [None]
